FAERS Safety Report 8584595-2 (Version None)
Quarter: 2012Q3

REPORT INFORMATION
  Report Type: 
  Country: None (occurrence: None)
  Receive Date: 20120802
  Receipt Date: 20120802
  Transmission Date: 20120928
  Serious: Yes (Other)
  Sender: FDA-Public Use
  Company Number: None

PATIENT
  Sex: Male
  Weight: 24.2 kg

DRUGS (2)
  1. LAMICTAL [Suspect]
     Indication: CONVULSION
     Dosage: 2 QD PO
     Route: 048
     Dates: start: 20090303
  2. DEPAKOTE [Suspect]
     Indication: CEREBRAL PALSY
     Dosage: K=ONE QAM PO  2 QPM PO

REACTIONS (3)
  - CONVULSION [None]
  - TOXICITY TO VARIOUS AGENTS [None]
  - TREMOR [None]
